FAERS Safety Report 18278571 (Version 1)
Quarter: 2020Q3

REPORT INFORMATION
  Report Type: Spontaneous
  Country: US (occurrence: US)
  Receive Date: 20200917
  Receipt Date: 20200917
  Transmission Date: 20201103
  Serious: No
  Sender: FDA-Public Use
  Company Number: US-BAYER-2020-199738

PATIENT
  Age: 60 Year
  Sex: Male

DRUGS (5)
  1. CLARITIN [Suspect]
     Active Substance: LORATADINE
  2. FLEXERIL [CEFIXIME] [Concomitant]
     Active Substance: CEFIXIME
  3. DIAZEPAM. [Concomitant]
     Active Substance: DIAZEPAM
  4. IBUPROFEN. [Concomitant]
     Active Substance: IBUPROFEN
  5. OXYCODONE [Concomitant]
     Active Substance: OXYCODONE

REACTIONS (2)
  - Fibula fracture [None]
  - Tibia fracture [None]
